FAERS Safety Report 12009448 (Version 1)
Quarter: 2016Q1

REPORT INFORMATION
  Report Type: Spontaneous
  Country: DK (occurrence: DK)
  Receive Date: 20160205
  Receipt Date: 20160205
  Transmission Date: 20160526
  Serious: Yes (Hospitalization)
  Sender: FDA-Public Use
  Company Number: DK-TEVA-629765ACC

PATIENT
  Age: 69 Year
  Sex: Male
  Weight: 77 kg

DRUGS (3)
  1. LOSARTANKALIUM OG HYDROCHLORTHIAZID [Concomitant]
     Indication: HYPERTENSION
     Dosage: 1 DOSAGE FORMS DAILY; STRENGTH: 100MG/12,5MG
     Route: 048
     Dates: start: 2010
  2. ALFUZOSIN ^TEVA^ [Suspect]
     Active Substance: ALFUZOSIN
     Indication: DYSURIA
     Dosage: 10 MILLIGRAM DAILY; STRENGTH: 10 MG
     Route: 048
     Dates: start: 20150327, end: 20151003
  3. LERCANIDIPINHYDROCHLORID [Concomitant]
     Indication: HYPERTENSION
     Dosage: 5 MILLIGRAM DAILY; DOSE: ? TABLET DAILY. STRENGTH: 10 MG
     Route: 048
     Dates: start: 2010

REACTIONS (4)
  - Cerebrovascular accident [Unknown]
  - Speech disorder [Recovered/Resolved]
  - Cognitive disorder [Recovered/Resolved]
  - Head discomfort [Recovered/Resolved]

NARRATIVE: CASE EVENT DATE: 20150831
